FAERS Safety Report 9617435 (Version 1)
Quarter: 2013Q4

REPORT INFORMATION
  Report Type: Spontaneous
  Country: US (occurrence: US)
  Receive Date: 20131011
  Receipt Date: 20131011
  Transmission Date: 20140711
  Serious: Yes (Life-Threatening, Other)
  Sender: FDA-Public Use
  Company Number: US-BAYER-2013-121802

PATIENT
  Sex: 0

DRUGS (1)
  1. AVELOX [Suspect]
     Route: 048

REACTIONS (1)
  - Anaphylactic shock [Recovered/Resolved]
